FAERS Safety Report 11748586 (Version 1)
Quarter: 2015Q4

REPORT INFORMATION
  Report Type: Spontaneous
  Country: US (occurrence: US)
  Receive Date: 20151117
  Receipt Date: 20151117
  Transmission Date: 20160304
  Serious: Yes (Death, Other)
  Sender: FDA-Public Use
  Company Number: US-HOSPIRA-3077948

PATIENT
  Age: 53 Year
  Sex: Male

DRUGS (4)
  1. COUMADIN [Concomitant]
     Active Substance: WARFARIN SODIUM
     Indication: ATRIAL FIBRILLATION
  2. DEXTROSE. [Concomitant]
     Active Substance: DEXTROSE
     Indication: PRODUCT USED FOR UNKNOWN INDICATION
     Route: 041
  3. DILTIAZEM [Concomitant]
     Active Substance: DILTIAZEM
     Indication: TACHYCARDIA
     Route: 041
  4. AMIODARONE [Suspect]
     Active Substance: AMIODARONE
     Indication: TACHYCARDIA
     Route: 041

REACTIONS (4)
  - Hepatic failure [Fatal]
  - Condition aggravated [Unknown]
  - Coagulopathy [Unknown]
  - Multi-organ failure [Fatal]
